FAERS Safety Report 13153841 (Version 2)
Quarter: 2017Q1

REPORT INFORMATION
  Report Type: Spontaneous
  Country: US (occurrence: US)
  Receive Date: 20170126
  Receipt Date: 20170126
  Transmission Date: 20170428
  Serious: Yes (Other)
  Sender: FDA-Public Use
  Company Number: PHHY2017US006738

PATIENT
  Age: 68 Year
  Sex: Female

DRUGS (2)
  1. KETOCONAZOLE. [Suspect]
     Active Substance: KETOCONAZOLE
     Indication: HYPERCORTICOIDISM
     Dosage: 300 MG, Q12H
     Route: 065
  2. OCTREOTIDE. [Suspect]
     Active Substance: OCTREOTIDE
     Indication: HYPERCORTICOIDISM
     Dosage: 300 UG, Q8H
     Route: 065

REACTIONS (3)
  - Therapeutic response decreased [Unknown]
  - Product use issue [Unknown]
  - Pancytopenia [Recovering/Resolving]
